FAERS Safety Report 5246876-X (Version None)
Quarter: 2007Q1

REPORT INFORMATION
  Report Type: 
  Country: None (occurrence: None)
  Receive Date: 20070226
  Receipt Date: 20070214
  Transmission Date: 20070707
  Serious: Yes (Hospitalization)
  Sender: FDA-Public Use
  Company Number: HQWYE122120FEB07

PATIENT

DRUGS (3)
  1. GEMTUZUMAB OZOGAMICIN [Suspect]
     Indication: ACUTE MYELOID LEUKAEMIA
     Dosage: ^POST-INDUCTION GEMTUZUMAB CYCLE II^
     Route: 065
  2. METOCLOPRAMIDE [Concomitant]
     Dosage: 30MG DAILY
     Route: 065
     Dates: start: 20061024, end: 20061109
  3. MAALOX FAST BLOCKER [Concomitant]
     Dosage: 2 TABS DAILY
     Route: 065
     Dates: start: 20061018, end: 20061024

REACTIONS (6)
  - BRONCHITIS [None]
  - DIARRHOEA [None]
  - FATIGUE [None]
  - FEBRILE NEUTROPENIA [None]
  - NAUSEA [None]
  - VOMITING [None]
